FAERS Safety Report 13863164 (Version 1)
Quarter: 2017Q3

REPORT INFORMATION
  Report Type: Spontaneous
  Country: US (occurrence: US)
  Receive Date: 20170814
  Receipt Date: 20170814
  Transmission Date: 20171127
  Serious: No
  Sender: FDA-Public Use
  Company Number: US-ALEXION PHARMACEUTICALS INC.-A201709042

PATIENT
  Sex: Male

DRUGS (1)
  1. STRENSIQ [Suspect]
     Active Substance: ASFOTASE ALFA
     Indication: HYPOPHOSPHATASIA
     Route: 058

REACTIONS (6)
  - Injection site swelling [Unknown]
  - Injection site reaction [Unknown]
  - Blood alkaline phosphatase abnormal [Unknown]
  - Blood phosphorus abnormal [Unknown]
  - Injection site pain [Unknown]
  - Injection site erythema [Unknown]
